FAERS Safety Report 20332559 (Version 2)
Quarter: 2022Q1

REPORT INFORMATION
  Report Type: Report from Study
  Country: CA (occurrence: None)
  Receive Date: 20220113
  Receipt Date: 20220211
  Transmission Date: 20220424
  Serious: Yes (Hospitalization)
  Sender: FDA-Public Use
  Company Number: 2021A870029

PATIENT
  Sex: Male

DRUGS (1)
  1. IMFINZI [Suspect]
     Active Substance: DURVALUMAB
     Indication: Small cell lung cancer extensive stage
     Dosage: 1500 MG IV IN COMBINATION WITH CHEMO EVERY 3 WEEKS X 4 CYCLES, THEN 1500 MG IV EVERY 4 WEEKS UNTI...
     Route: 042
     Dates: start: 20211130

REACTIONS (7)
  - Periorbital swelling [Recovered/Resolved]
  - Urticaria [Recovered/Resolved]
  - Pruritus [Recovered/Resolved]
  - Pyrexia [Recovered/Resolved]
  - Febrile neutropenia [Unknown]
  - Diarrhoea [Unknown]
  - Lip swelling [Unknown]
